FAERS Safety Report 25205020 (Version 2)
Quarter: 2025Q2

REPORT INFORMATION
  Report Type: Spontaneous
  Country: US (occurrence: US)
  Receive Date: 20250416
  Receipt Date: 20250429
  Transmission Date: 20250716
  Serious: No
  Sender: BAUSCH AND LOMB
  Company Number: US-BAUSCHBL-2025BNL006285

PATIENT
  Age: 66 Year
  Sex: Female
  Weight: 68 kg

DRUGS (1)
  1. XIIDRA [Suspect]
     Active Substance: LIFITEGRAST
     Indication: Dry eye
     Dosage: ONE DROP INTO EACH EYE QD, 2DROPS
     Route: 047

REACTIONS (4)
  - Foreign body in eye [Not Recovered/Not Resolved]
  - Product complaint [Unknown]
  - Inappropriate schedule of product administration [Unknown]
  - Product container seal issue [Unknown]
